FAERS Safety Report 22062237 (Version 1)
Quarter: 2023Q1

REPORT INFORMATION
  Report Type: Report from Study
  Country: IT (occurrence: IT)
  Receive Date: 20230304
  Receipt Date: 20230304
  Transmission Date: 20230418
  Serious: Yes (Death)
  Sender: FDA-Public Use
  Company Number: IT-ABBVIE-22P-083-4519473-00

PATIENT
  Age: 74 Year
  Sex: Female
  Weight: 64 kg

DRUGS (12)
  1. VENETOCLAX [Suspect]
     Active Substance: VENETOCLAX
     Indication: Acute myeloid leukaemia
     Dosage: 50 MILLIGRAM
     Route: 048
     Dates: start: 20220801, end: 20220823
  2. DECITABINE [Concomitant]
     Active Substance: DECITABINE
     Indication: Acute myeloid leukaemia
     Dosage: 33 MILLIGRAM
     Route: 048
     Dates: start: 20220801, end: 20220805
  3. ATORVASTATIN [Concomitant]
     Active Substance: ATORVASTATIN
     Indication: Hypercholesterolaemia
     Dosage: 10 MILLIGRAM
     Route: 048
     Dates: end: 20220823
  4. NOXAFIL [Concomitant]
     Active Substance: POSACONAZOLE
     Indication: Antifungal prophylaxis
     Dosage: 5ML
     Route: 048
     Dates: end: 20220823
  5. LAMIVUDINE [Concomitant]
     Active Substance: LAMIVUDINE
     Indication: Hepatitis B
     Dosage: 100 MILLIGRAM
     Route: 048
     Dates: end: 20220823
  6. LASIX [Concomitant]
     Active Substance: FUROSEMIDE
     Indication: Infrared therapy
     Dosage: 25 MILLIGRAM
     Route: 048
     Dates: end: 20220823
  7. CITALOPRAM [Concomitant]
     Active Substance: CITALOPRAM HYDROBROMIDE
     Indication: Depression
     Dosage: 20 GGT
     Route: 048
     Dates: end: 20220823
  8. ALLOPURINOL [Concomitant]
     Active Substance: ALLOPURINOL
     Indication: Hyperuricaemia
     Dosage: 300 MG
     Route: 048
     Dates: end: 20220823
  9. GLIPIZIDE [Concomitant]
     Active Substance: GLIPIZIDE
     Indication: Diabetes mellitus
     Dosage: 5MG
     Route: 048
     Dates: end: 20220823
  10. HYDROCHLOROTHIAZIDE\OLMESARTAN MEDOXOMIL [Concomitant]
     Active Substance: HYDROCHLOROTHIAZIDE\OLMESARTAN MEDOXOMIL
     Indication: Hypertension
     Dosage: 20+12.5MG
     Route: 048
     Dates: end: 20220823
  11. Pasaden [Concomitant]
     Indication: Anxiety
     Dosage: 0.5MG
     Route: 048
     Dates: end: 20220823
  12. Pasaden [Concomitant]
     Indication: Anxiety
     Dosage: 0.5MG
     Route: 048
     Dates: end: 20220823

REACTIONS (5)
  - Death [Fatal]
  - Hypotension [Fatal]
  - Vomiting [Fatal]
  - Cardiac arrest [Fatal]
  - Febrile neutropenia [Fatal]

NARRATIVE: CASE EVENT DATE: 20220824
